FAERS Safety Report 7400401-3 (Version None)
Quarter: 2011Q2

REPORT INFORMATION
  Report Type: 
  Country: None (occurrence: None)
  Receive Date: 20110407
  Receipt Date: 20110331
  Transmission Date: 20111010
  Serious: Yes (Life-Threatening)
  Sender: FDA-Public Use
  Company Number: JP-JNJFOC-20101000040

PATIENT
  Sex: Female
  Weight: 39 kg

DRUGS (13)
  1. RAMELTEON [Concomitant]
     Indication: PROPHYLAXIS
     Dosage: 1 DF
     Route: 048
  2. DOXIL [Suspect]
     Indication: OVARIAN CANCER
     Route: 042
  3. DOXIL [Suspect]
     Route: 042
  4. MAGMITT [Concomitant]
     Dosage: 4 DF
     Route: 048
  5. MAGMITT [Concomitant]
     Dosage: 4 DF
     Route: 048
  6. RAMELTEON [Concomitant]
     Dosage: 1 DF
     Route: 048
  7. DEXAMETHASONE [Concomitant]
     Indication: PROPHYLAXIS
     Route: 049
  8. MAGMITT [Concomitant]
     Indication: PROPHYLAXIS
     Dosage: 3 DF
     Route: 048
  9. KYTRIL [Concomitant]
     Indication: PROPHYLAXIS
     Route: 041
  10. LAXOBERON [Concomitant]
     Indication: PROPHYLAXIS
     Route: 048
  11. AMPICILLIN [Concomitant]
     Indication: PROPHYLAXIS
     Dosage: 4 DF
     Route: 048
  12. DOXIL [Suspect]
     Dosage: PATIENT HAD 2 CYCLES.
     Route: 042
  13. KYTRIL [Concomitant]
     Route: 041

REACTIONS (2)
  - MASTITIS [None]
  - PROCEDURAL SITE REACTION [None]
